FAERS Safety Report 7215320-5 (Version None)
Quarter: 2011Q1

REPORT INFORMATION
  Report Type: 
  Country: None (occurrence: None)
  Receive Date: 20110107
  Receipt Date: 20101227
  Transmission Date: 20110831
  Serious: No
  Sender: FDA-Public Use
  Company Number: B0691276A

PATIENT
  Age: 8 Month

DRUGS (2)
  1. TAMIFLU [Concomitant]
  2. RELENZA [Suspect]
     Indication: INFLUENZA

REACTIONS (1)
  - DRUG EXPOSURE VIA BREAST MILK [None]
